FAERS Safety Report 4421581-8 (Version None)
Quarter: 2004Q3

REPORT INFORMATION
  Report Type: 
  Country: None (occurrence: None)
  Receive Date: 20040809
  Receipt Date: 20040809
  Transmission Date: 20050211
  Serious: Yes (Hospitalization)
  Sender: FDA-Public Use
  Company Number: None

PATIENT
  Age: 75 Year

DRUGS (6)
  1. PERCOCET [Suspect]
     Indication: DEMENTIA
     Dosage: 5 MG PRIOR TO HOSPITALIZATION
  2. TIGAN [Suspect]
     Indication: DEMENTIA
     Dosage: PRN PRIOR TO HOSPITALIZATION
  3. ATIVAN [Suspect]
     Indication: DEMENTIA
     Dosage: 1 MG TID PRIOR TO HOSPITALIZATION
  4. DOXEPIN HCL [Suspect]
     Indication: DEMENTIA
     Dosage: 50 MG BID PRIOR TO HOSPITALIZATION
  5. DIAZEPAM [Suspect]
     Indication: MYCOSIS FUNGOIDES
     Dosage: 5MG QHS PRIOR TO HOSPITALIZATION
  6. ZYPREXA [Suspect]
     Indication: MYCOSIS FUNGOIDES
     Dosage: 10 MG QD PRIOR TO HOSPITALIZATION

REACTIONS (3)
  - COMA [None]
  - CONFUSIONAL STATE [None]
  - SNORING [None]
